FAERS Safety Report 7418600-3 (Version None)
Quarter: 2011Q2

REPORT INFORMATION
  Report Type: 
  Country: None (occurrence: None)
  Receive Date: 20110415
  Receipt Date: 20110405
  Transmission Date: 20111010
  Serious: Yes (Hospitalization, Other)
  Sender: FDA-Public Use
  Company Number: PHHY2011DE29579

PATIENT
  Sex: Male
  Weight: 75 kg

DRUGS (1)
  1. TASIGNA [Suspect]
     Indication: CHRONIC MYELOID LEUKAEMIA
     Route: 048
     Dates: end: 20101203

REACTIONS (11)
  - ABDOMINAL DISCOMFORT [None]
  - INFLAMMATION [None]
  - CHEST PAIN [None]
  - DYSPNOEA [None]
  - C-REACTIVE PROTEIN INCREASED [None]
  - TACHYARRHYTHMIA [None]
  - ELECTROCARDIOGRAM QT PROLONGED [None]
  - ASTHENIA [None]
  - VOMITING [None]
  - PLEURAL EFFUSION [None]
  - DIARRHOEA [None]
